FAERS Safety Report 17854106 (Version 1)
Quarter: 2020Q2

REPORT INFORMATION
  Report Type: Other
  Country: JP (occurrence: JP)
  Receive Date: 20200603
  Receipt Date: 20200603
  Transmission Date: 20200714
  Serious: Yes (Other)
  Sender: FDA-Public Use
  Company Number: JP-ASTELLAS-2020US018388

PATIENT
  Age: 65 Year
  Sex: Female
  Weight: 48 kg

DRUGS (26)
  1. KAYTWO N [Concomitant]
     Active Substance: MENATETRENONE
     Indication: PRODUCT USED FOR UNKNOWN INDICATION
     Dosage: UNK UNK, UNKNOWN FREQ.
     Route: 065
  2. MEROPENEM [MEROPENEM TRIHYDRATE] [Concomitant]
     Active Substance: MEROPENEM
     Indication: PRODUCT USED FOR UNKNOWN INDICATION
     Dosage: UNK UNK, UNKNOWN FREQ.
     Route: 065
  3. OMEPRAZOLE [OMEPRAZOLE SODIUM] [Concomitant]
     Active Substance: OMEPRAZOLE SODIUM
     Indication: PRODUCT USED FOR UNKNOWN INDICATION
     Dosage: UNK UNK, UNKNOWN FREQ.
     Route: 065
  4. PIARLE [Concomitant]
     Active Substance: LACTULOSE
     Indication: PRODUCT USED FOR UNKNOWN INDICATION
     Dosage: UNK UNK, UNKNOWN FREQ.
     Route: 065
  5. VFEND [Suspect]
     Active Substance: VORICONAZOLE
     Indication: CANDIDA INFECTION
     Dosage: 68 MG, TWICE DAILY (TOATAL 136 MG DAILY)
     Route: 041
     Dates: start: 20200110, end: 20200118
  6. GRAN [FILGRASTIM] [Concomitant]
     Indication: PRODUCT USED FOR UNKNOWN INDICATION
     Dosage: UNK UNK, UNKNOWN FREQ.
     Route: 065
  7. NOVOLIN R [Concomitant]
     Active Substance: INSULIN HUMAN
     Indication: PRODUCT USED FOR UNKNOWN INDICATION
     Dosage: UNK UNK, UNKNOWN FREQ.
     Route: 065
  8. ACELIO [Concomitant]
     Active Substance: ACETAMINOPHEN
     Indication: PRODUCT USED FOR UNKNOWN INDICATION
     Dosage: UNK UNK, UNKNOWN FREQ.
     Route: 065
  9. SODIUM CHLORIDE. [Concomitant]
     Active Substance: SODIUM CHLORIDE
     Indication: PRODUCT USED FOR UNKNOWN INDICATION
     Dosage: UNK UNK, UNKNOWN FREQ.
     Route: 065
  10. SOLU-MEDROL [Concomitant]
     Active Substance: METHYLPREDNISOLONE SODIUM SUCCINATE
     Dosage: UNK UNK, UNKNOWN FREQ. (1000MGX1)
     Route: 042
     Dates: start: 20200118
  11. ACICLOVIR [Concomitant]
     Active Substance: ACYCLOVIR
     Indication: PRODUCT USED FOR UNKNOWN INDICATION
     Dosage: UNK UNK, UNKNOWN FREQ.
     Route: 065
  12. HISHIPHAGEN C [CYSTEINE HYDROCHLORIDE;GLYCINE;GLYCYRRHIZIC ACID] [Concomitant]
     Indication: PRODUCT USED FOR UNKNOWN INDICATION
     Dosage: UNK UNK, UNKNOWN FREQ.
     Route: 065
  13. URSO [Concomitant]
     Active Substance: URSODIOL
     Indication: PRODUCT USED FOR UNKNOWN INDICATION
     Dosage: UNK UNK, UNKNOWN FREQ.
     Route: 065
  14. ONOACT [Concomitant]
     Active Substance: LANDIOLOL HYDROCHLORIDE
     Indication: PRODUCT USED FOR UNKNOWN INDICATION
     Dosage: UNK UNK, UNKNOWN FREQ.
     Route: 065
  15. GABEXATE MESILATE [Concomitant]
     Active Substance: GABEXATE MESYLATE
     Indication: PRODUCT USED FOR UNKNOWN INDICATION
     Dosage: UNK UNK, UNKNOWN FREQ.
     Route: 065
  16. SOLU-MEDROL [Concomitant]
     Active Substance: METHYLPREDNISOLONE SODIUM SUCCINATE
     Dosage: UNK UNK, UNKNOWN FREQ. (45MGX 2)
     Route: 042
  17. SOLU-MEDROL [Concomitant]
     Active Substance: METHYLPREDNISOLONE SODIUM SUCCINATE
     Dosage: UNK UNK, UNKNOWN FREQ. (45X2)
     Route: 042
     Dates: start: 20200121
  18. MAGNESIUM SULFATE. [Concomitant]
     Active Substance: MAGNESIUM SULFATE
     Indication: PRODUCT USED FOR UNKNOWN INDICATION
     Dosage: UNK UNK, UNKNOWN FREQ.
     Route: 065
  19. MEDLENIK [Concomitant]
     Active Substance: CUPRIC SULFATE\FERRIC CHLORIDE\MANGANESE CHLORIDE\POTASSIUM IODIDE\ZINC SULFATE
     Indication: PRODUCT USED FOR UNKNOWN INDICATION
     Dosage: UNK UNK, UNKNOWN FREQ.
     Route: 065
  20. GENTACIN [Concomitant]
     Active Substance: GENTAMICIN SULFATE
     Indication: PRODUCT USED FOR UNKNOWN INDICATION
     Dosage: UNK UNK, UNKNOWN FREQ.
     Route: 065
  21. KCL [Concomitant]
     Active Substance: POTASSIUM CHLORIDE
     Indication: PRODUCT USED FOR UNKNOWN INDICATION
     Dosage: UNK UNK, UNKNOWN FREQ.
     Route: 065
  22. AMBISOME [Suspect]
     Active Substance: AMPHOTERICIN B
     Indication: CANDIDA INFECTION
     Dosage: 124 MG, QD
     Route: 041
     Dates: start: 20200117, end: 20200124
  23. SAMTIREL [Suspect]
     Active Substance: ATOVAQUONE
     Indication: PNEUMOCYSTIS JIROVECII PNEUMONIA
     Route: 048
     Dates: start: 20200106, end: 20200118
  24. PROGRAF [Concomitant]
     Active Substance: TACROLIMUS
     Indication: PRODUCT USED FOR UNKNOWN INDICATION
     Dosage: UNK UNK, UNKNOWN FREQ.
     Route: 065
  25. SOLU-MEDROL [Concomitant]
     Active Substance: METHYLPREDNISOLONE SODIUM SUCCINATE
     Indication: PRODUCT USED FOR UNKNOWN INDICATION
     Dosage: UNK UNK, UNKNOWN FREQ. (500X2)
     Route: 042
     Dates: start: 20191217
  26. VANCOMYCIN HYDROCHLORIDE. [Concomitant]
     Active Substance: VANCOMYCIN HYDROCHLORIDE
     Indication: PRODUCT USED FOR UNKNOWN INDICATION
     Dosage: UNK UNK, UNKNOWN FREQ.
     Route: 065

REACTIONS (1)
  - Toxic epidermal necrolysis [Recovering/Resolving]

NARRATIVE: CASE EVENT DATE: 20200117
